FAERS Safety Report 11380958 (Version 1)
Quarter: 2015Q3

REPORT INFORMATION
  Report Type: Other
  Country: ES (occurrence: ES)
  Receive Date: 20150814
  Receipt Date: 20150814
  Transmission Date: 20151125
  Serious: Yes (Hospitalization)
  Sender: FDA-Public Use
  Company Number: ES-ENDO PHARMACEUTICALS INC-2015-002185

PATIENT
  Age: 69 Year
  Sex: Female

DRUGS (2)
  1. HALOPERIDOL TABLETS [Suspect]
     Active Substance: HALOPERIDOL
     Indication: SCHIZOPHRENIA, PARANOID TYPE
     Route: 065
  2. HALOPERIDOL TABLETS [Suspect]
     Active Substance: HALOPERIDOL
     Route: 065

REACTIONS (1)
  - Hypothermia [Recovered/Resolved]
